FAERS Safety Report 26187497 (Version 1)
Quarter: 2025Q4

REPORT INFORMATION
  Report Type: Spontaneous
  Country: CN (occurrence: CN)
  Receive Date: 20251222
  Receipt Date: 20251222
  Transmission Date: 20260117
  Serious: Yes (Hospitalization, Other)
  Sender: NOVARTIS
  Company Number: CN-002147023-NVSC2025CN192262

PATIENT
  Age: 81 Year
  Sex: Female
  Weight: 55 kg

DRUGS (3)
  1. TEGRETOL [Suspect]
     Active Substance: CARBAMAZEPINE
     Indication: Facial spasm
     Dosage: 0.1 G, BID
     Route: 048
     Dates: start: 20240221, end: 20251211
  2. BENSERAZIDE HYDROCHLORIDE\LEVODOPA [Suspect]
     Active Substance: BENSERAZIDE HYDROCHLORIDE\LEVODOPA
     Indication: Parkinson^s disease
     Dosage: 0.25 G, TID
     Route: 048
     Dates: start: 20240221, end: 20251211
  3. PRAMIPEXOLE DIHYDROCHLORIDE [Concomitant]
     Active Substance: PRAMIPEXOLE DIHYDROCHLORIDE
     Indication: Parkinson^s disease
     Dosage: 0.25 MG, TID
     Route: 048
     Dates: start: 20240221, end: 20251211

REACTIONS (25)
  - Hyponatraemia [Recovering/Resolving]
  - Productive cough [Unknown]
  - Asthenia [Recovering/Resolving]
  - Blood chloride decreased [Unknown]
  - Aortic arteriosclerosis [Unknown]
  - Anaemia [Unknown]
  - Protein urine present [Unknown]
  - Hypochromic anaemia [Unknown]
  - Blood albumin decreased [Unknown]
  - Hepatic calcification [Unknown]
  - Bile duct stone [Unknown]
  - Tachypnoea [Unknown]
  - Gamma-glutamyltransferase increased [Unknown]
  - Body temperature increased [Unknown]
  - Blood pressure abnormal [Unknown]
  - Pulmonary mass [Unknown]
  - Pleural thickening [Unknown]
  - Arteriosclerosis coronary artery [Unknown]
  - Iron deficiency anaemia [Unknown]
  - Blood folate decreased [Unknown]
  - Intra-abdominal calcification [Unknown]
  - Platelet count increased [Unknown]
  - Abdominal pain [Unknown]
  - Pneumonitis [Unknown]
  - Dizziness [Recovering/Resolving]

NARRATIVE: CASE EVENT DATE: 20251206
